FAERS Safety Report 25205759 (Version 1)
Quarter: 2025Q2

REPORT INFORMATION
  Report Type: Report from Study
  Country: US (occurrence: US)
  Receive Date: 20250417
  Receipt Date: 20250417
  Transmission Date: 20250717
  Serious: Yes (Other)
  Sender: CHEPLAPHARM
  Company Number: US-CHEPLA-2025004732

PATIENT
  Age: 16 Year
  Sex: Male

DRUGS (18)
  1. QUETIAPINE [Suspect]
     Active Substance: QUETIAPINE
     Indication: Insomnia
     Dosage: AT BED TIME INITIALLY PRESCRIBED DURING FIRST HOSPITALIZATION, BETWEEN 3RD AND 4TH HOSPITALISATIO...
  2. QUETIAPINE [Suspect]
     Active Substance: QUETIAPINE
     Indication: Bipolar II disorder
     Dosage: AT BED TIME INITIALLY PRESCRIBED DURING FIRST HOSPITALIZATION, BETWEEN 3RD AND 4TH HOSPITALISATIO...
  3. QUETIAPINE [Suspect]
     Active Substance: QUETIAPINE
     Indication: Insomnia
  4. QUETIAPINE [Suspect]
     Active Substance: QUETIAPINE
     Indication: Bipolar II disorder
  5. QUETIAPINE [Suspect]
     Active Substance: QUETIAPINE
     Indication: Insomnia
     Dosage: FINAL MEDICATION REGIMEN; AT BEDTIME?DAILY DOSE: 300 MILLIGRAM
  6. QUETIAPINE [Suspect]
     Active Substance: QUETIAPINE
     Indication: Bipolar II disorder
     Dosage: FINAL MEDICATION REGIMEN; AT BEDTIME?DAILY DOSE: 300 MILLIGRAM
  7. ALPRAZOLAM [Suspect]
     Active Substance: ALPRAZOLAM
  8. ESCITALOPRAM [Suspect]
     Active Substance: ESCITALOPRAM OXALATE
     Indication: Depression
     Dosage: DAILY; BETWEEN 3RD AND 4TH HOSPITALISATION DISCONTINUED BY OUTPATIENT PYSCHIATRIST
  9. ESCITALOPRAM [Suspect]
     Active Substance: ESCITALOPRAM OXALATE
     Indication: Depression
     Dosage: FINAL MEDICATION REGIMEN?DAILY DOSE: 10 MILLIGRAM
  10. GUANFACINE [Suspect]
     Active Substance: GUANFACINE
     Indication: Impulsive behaviour
     Dosage: BEDTIME; BETWEEN 3RD AND 4TH HOSPITALISATION DISCONTINUED BY OUTPATIENT PYSCHIATRIST
  11. GUANFACINE [Suspect]
     Active Substance: GUANFACINE
     Indication: Impulsive behaviour
     Dosage: BEDTIME
  12. GUANFACINE [Suspect]
     Active Substance: GUANFACINE
     Indication: Impulsive behaviour
     Dosage: FINAL MEDICATION REGIMEN; AT BEDTIME?DAILY DOSE: 2 MILLIGRAM
  13. DELSYM [Suspect]
     Active Substance: DEXTROMETHORPHAN
  14. DELSYM [Suspect]
     Active Substance: DEXTROMETHORPHAN
  15. ISOPROPYL ALCOHOL [Suspect]
     Active Substance: ISOPROPYL ALCOHOL
  16. BUTANE [Suspect]
     Active Substance: BUTANE
     Route: 055
  17. CANNABIS SATIVA SUBSP. INDICA TOP [Suspect]
     Active Substance: CANNABIS SATIVA SUBSP. INDICA TOP
     Indication: Substance use
  18. ALCOHOL [Suspect]
     Active Substance: ALCOHOL
     Indication: Alcohol use disorder

REACTIONS (5)
  - Brain injury [Unknown]
  - Toxicity to various agents [Unknown]
  - Substance use disorder [Unknown]
  - Treatment noncompliance [Unknown]
  - Headache [Unknown]
